FAERS Safety Report 8928742 (Version 1)
Quarter: 2012Q4

REPORT INFORMATION
  Report Type: 
  Country: US (occurrence: US)
  Receive Date: 20121128
  Receipt Date: 20121128
  Transmission Date: 20130627
  Serious: No
  Sender: FDA-Public Use
  Company Number: US-VERTEX PHARMACEUTICAL INC.-2012-025220

PATIENT
  Sex: Female
  Weight: 105 kg

DRUGS (6)
  1. VX-950 (TELAPREVIR) [Suspect]
     Indication: HEPATITIS C
     Dosage: 750 mg, tid
     Route: 048
     Dates: start: 2012
  2. PEGASYS [Concomitant]
     Indication: HEPATITIS C
     Dosage: 180 ?g, qw
     Route: 058
     Dates: start: 2012
  3. RIBASPHERE [Concomitant]
     Indication: HEPATITIS C
     Dosage: 600 mg, bid
     Route: 048
     Dates: start: 2012
  4. AMLODIPINE [Concomitant]
     Dosage: 5 mg, qd
     Route: 048
  5. DIOVAN [Concomitant]
     Dosage: 80 mg, qd
     Route: 048
  6. METFORMIN [Concomitant]
     Dosage: 500 mg, qd
     Route: 048

REACTIONS (1)
  - Adverse event [Unknown]
